FAERS Safety Report 25553565 (Version 2)
Quarter: 2025Q3

REPORT INFORMATION
  Report Type: Spontaneous
  Country: EU (occurrence: EU)
  Receive Date: 20250715
  Receipt Date: 20250723
  Transmission Date: 20251021
  Serious: Yes (Other)
  Sender: SANDOZ
  Company Number: None

PATIENT
  Age: 93 Year
  Sex: Female
  Weight: 53 kg

DRUGS (7)
  1. ANASTROZOLE [Suspect]
     Active Substance: ANASTROZOLE
     Indication: Medication error
     Dosage: 1 MG, QD
     Route: 048
     Dates: start: 20250503, end: 20250503
  2. ALDACTONE [Suspect]
     Active Substance: SPIRONOLACTONE
     Indication: Medication error
     Dosage: 0.5 DF, QD, SCORED FILM-COATED TABLET
     Route: 048
     Dates: start: 20250503, end: 20250503
  3. BISOPROLOL FUMARATE [Suspect]
     Active Substance: BISOPROLOL FUMARATE
     Indication: Medication error
     Dosage: 7.5 MG, QD
     Route: 048
     Dates: start: 20250503, end: 20250503
  4. CYAMEMAZINE [Suspect]
     Active Substance: CYAMEMAZINE
     Indication: Medication error
     Dosage: 50 MG, QD
     Route: 048
     Dates: start: 20250503, end: 20250503
  5. ELIQUIS [Suspect]
     Active Substance: APIXABAN
     Indication: Medication error
     Dosage: 1 DF, QD
     Route: 048
     Dates: start: 20250503, end: 20250503
  6. FUROSEMIDE [Suspect]
     Active Substance: FUROSEMIDE
     Indication: Medication error
     Route: 048
     Dates: start: 20250503, end: 20250503
  7. LORAZEPAM [Suspect]
     Active Substance: LORAZEPAM
     Indication: Medication error
     Dosage: 0.5 MG, QD
     Route: 048
     Dates: start: 20250503, end: 20250503

REACTIONS (4)
  - Bradycardia [Recovered/Resolved]
  - Hypotension [Recovered/Resolved]
  - Product administration error [Recovered/Resolved]
  - Wrong patient received product [Recovered/Resolved]

NARRATIVE: CASE EVENT DATE: 20250503
